FAERS Safety Report 5370207-8 (Version None)
Quarter: 2007Q2

REPORT INFORMATION
  Report Type: 
  Country: None (occurrence: None)
  Receive Date: 20070626
  Receipt Date: 20070622
  Transmission Date: 20071010
  Serious: Yes (Other)
  Sender: FDA-Public Use
  Company Number: US-ASTRAZENECA-2007UW09645

PATIENT
  Age: 12 Year
  Sex: Male

DRUGS (2)
  1. PULMICORT [Suspect]
     Dosage: 200 DOSE UNIT
     Route: 055
     Dates: start: 20050101
  2. ALBUTEROL [Concomitant]

REACTIONS (2)
  - ANKLE FRACTURE [None]
  - BONE INFARCTION [None]
